FAERS Safety Report 11619029 (Version 2)
Quarter: 2015Q4

REPORT INFORMATION
  Report Type: Report from Study
  Country: CO (occurrence: CO)
  Receive Date: 20151012
  Receipt Date: 20151101
  Transmission Date: 20160304
  Serious: Yes (Hospitalization, Other)
  Sender: FDA-Public Use
  Company Number: PHHY2015CO122522

PATIENT
  Sex: Male
  Weight: 55 kg

DRUGS (1)
  1. GLIVEC [Suspect]
     Active Substance: IMATINIB MESYLATE
     Indication: CHRONIC MYELOID LEUKAEMIA
     Dosage: 400 MG, QD
     Route: 065
     Dates: start: 2011

REACTIONS (4)
  - Localised infection [Recovered/Resolved]
  - Weight decreased [Unknown]
  - Drug ineffective [Unknown]
  - Decreased immune responsiveness [Unknown]
